FAERS Safety Report 20851277 (Version 2)
Quarter: 2022Q2

REPORT INFORMATION
  Report Type: Spontaneous
  Country: JP (occurrence: JP)
  Receive Date: 20220519
  Receipt Date: 20220610
  Transmission Date: 20220721
  Serious: No
  Sender: FDA-Public Use
  Company Number: JP-MSD-2205JPN001010J

PATIENT
  Age: 81 Year
  Sex: Female
  Weight: 34 kg

DRUGS (1)
  1. STROMECTOL [Suspect]
     Active Substance: IVERMECTIN
     Indication: Acarodermatitis
     Dosage: 9 MILLIGRAM
     Route: 048
     Dates: start: 20220504

REACTIONS (4)
  - Blood sodium increased [Recovered/Resolved]
  - Blood glucose increased [Recovering/Resolving]
  - Blood creatinine increased [Recovered/Resolved]
  - Overdose [Unknown]

NARRATIVE: CASE EVENT DATE: 20220504
